FAERS Safety Report 8896449 (Version 1)
Quarter: 2012Q4

REPORT INFORMATION
  Report Type: Spontaneous
  Country: US (occurrence: None)
  Receive Date: 20121107
  Receipt Date: 20121107
  Transmission Date: 20130627
  Serious: Yes (Disabling)
  Sender: FDA-Public Use
  Company Number: None

PATIENT
  Age: 33 Year
  Sex: Male
  Weight: 87.54 kg

DRUGS (2)
  1. ONFI [Suspect]
     Indication: SEIZURES
     Dosage: 10 mg twice daily po
     Route: 048
     Dates: start: 20120831, end: 20120905
  2. ONFI [Suspect]
     Indication: SEIZURES
     Dates: start: 20121012, end: 20121014

REACTIONS (1)
  - Ataxia [None]
